FAERS Safety Report 23691123 (Version 1)
Quarter: 2024Q2

REPORT INFORMATION
  Report Type: Spontaneous
  Country: US (occurrence: US)
  Receive Date: 20240401
  Receipt Date: 20240401
  Transmission Date: 20240716
  Serious: Yes (Life-Threatening, Hospitalization, Other)
  Sender: FDA-Public Use
  Company Number: US-EPICPHARMA-US-2024EPCLIT00322

PATIENT
  Age: 67 Year
  Sex: Male

DRUGS (1)
  1. METFORMIN HYDROCHLORIDE [Suspect]
     Active Substance: METFORMIN HYDROCHLORIDE
     Indication: Product used for unknown indication
     Route: 065

REACTIONS (11)
  - Lactic acidosis [Recovered/Resolved]
  - Depressed level of consciousness [Unknown]
  - Toxicity to various agents [Unknown]
  - Shock [Unknown]
  - Acidosis [Unknown]
  - Asthenia [Unknown]
  - Nausea [Unknown]
  - Confusional state [Unknown]
  - Urine output decreased [Unknown]
  - Disorientation [Unknown]
  - Mucosal dryness [Unknown]
